FAERS Safety Report 9714564 (Version 1)
Quarter: 2013Q4

REPORT INFORMATION
  Report Type: Spontaneous
  Country: JP (occurrence: JP)
  Receive Date: 20131126
  Receipt Date: 20131126
  Transmission Date: 20140711
  Serious: Yes (Other)
  Sender: FDA-Public Use
  Company Number: JP-ALLERGAN-1318539US

PATIENT
  Age: 60 Year
  Sex: Male

DRUGS (2)
  1. ALPHAGAN [Suspect]
     Indication: GLAUCOMA
     Dosage: UNK
     Route: 047
     Dates: start: 20131016
  2. MYTEAR [Concomitant]
     Dosage: UNK
     Dates: start: 20130903

REACTIONS (1)
  - Pemphigoid [Unknown]
